FAERS Safety Report 12770419 (Version 2)
Quarter: 2017Q1

REPORT INFORMATION
  Report Type: Spontaneous
  Country: US (occurrence: US)
  Receive Date: 20160922
  Receipt Date: 20170116
  Transmission Date: 20170428
  Serious: No
  Sender: FDA-Public Use
  Company Number: US-PFIZER INC-2016441145

PATIENT
  Age: 59 Year
  Sex: Female

DRUGS (4)
  1. NEURONTIN [Suspect]
     Active Substance: GABAPENTIN
     Indication: BURNING SENSATION
  2. DULOXETINE DR [Concomitant]
     Active Substance: DULOXETINE
     Dosage: 40 MG, UNK
     Dates: start: 2015
  3. NEURONTIN [Suspect]
     Active Substance: GABAPENTIN
     Indication: PAIN IN EXTREMITY
     Dosage: 10 MG, TWICE A DAY
     Dates: start: 2015
  4. TRADJENTA [Concomitant]
     Active Substance: LINAGLIPTIN
     Dosage: 5 MG, ONCE A DAY
     Dates: start: 2015

REACTIONS (2)
  - Drug ineffective [Unknown]
  - Product use issue [Unknown]
